FAERS Safety Report 7142362-0 (Version None)
Quarter: 2010Q4

REPORT INFORMATION
  Report Type: 
  Country: None (occurrence: None)
  Receive Date: 20101207
  Receipt Date: 20101129
  Transmission Date: 20110411
  Serious: Yes (Hospitalization, Other)
  Sender: FDA-Public Use
  Company Number: JP-PFIZER INC-2010157272

PATIENT
  Age: 84 Year
  Sex: Female

DRUGS (2)
  1. LYRICA [Suspect]
     Indication: PAIN IN EXTREMITY
     Dosage: 50 MG/DAY
     Route: 048
     Dates: start: 20101115, end: 20101121
  2. LYRICA [Suspect]
     Indication: SPINAL COLUMN STENOSIS

REACTIONS (2)
  - MUSCULAR WEAKNESS [None]
  - SOMNOLENCE [None]
